FAERS Safety Report 4777198-9 (Version None)
Quarter: 2005Q3

REPORT INFORMATION
  Report Type: 
  Country: None (occurrence: None)
  Receive Date: 20050915
  Receipt Date: 20050831
  Transmission Date: 20060218
  Serious: Yes (Hospitalization)
  Sender: FDA-Public Use
  Company Number: 12240

PATIENT
  Age: 64 Year
  Sex: Male

DRUGS (5)
  1. PACLITAXEL [Suspect]
  2. CARBOPLATIN [Suspect]
  3. DMXAA [Suspect]
     Indication: NON-SMALL CELL LUNG CANCER
     Dosage: 1200 MG DAILY, IV
     Route: 042
     Dates: start: 20050706, end: 20050727
  4. METOCLOPRAMIDE [Concomitant]
  5. TROPISETRON [Concomitant]

REACTIONS (6)
  - DEHYDRATION [None]
  - HAEMOGLOBIN DECREASED [None]
  - NAUSEA [None]
  - POST PROCEDURAL VOMITING [None]
  - PYREXIA [None]
  - RESPIRATORY TRACT INFECTION [None]
